FAERS Safety Report 18404216 (Version 10)
Quarter: 2021Q2

REPORT INFORMATION
  Report Type: Report from Study
  Country: JP (occurrence: JP)
  Receive Date: 20201020
  Receipt Date: 20210428
  Transmission Date: 20210717
  Serious: Yes (Hospitalization)
  Sender: FDA-Public Use
  Company Number: JP-EISAI MEDICAL RESEARCH-EC-2020-082329

PATIENT
  Age: 56 Year
  Sex: Female
  Weight: 54.6 kg

DRUGS (4)
  1. PEMBROLIZUMAB. [Suspect]
     Active Substance: PEMBROLIZUMAB
     Indication: ENDOMETRIAL CANCER
     Route: 041
     Dates: start: 20200930, end: 20200930
  2. PEMBROLIZUMAB. [Suspect]
     Active Substance: PEMBROLIZUMAB
     Route: 041
     Dates: start: 20201118
  3. LENVATINIB [Suspect]
     Active Substance: LENVATINIB
     Indication: ENDOMETRIAL CANCER
     Route: 048
     Dates: start: 20200930, end: 20201013
  4. XARELTO [Concomitant]
     Active Substance: RIVAROXABAN
     Dates: start: 20200430

REACTIONS (1)
  - Lower gastrointestinal perforation [Recovered/Resolved]

NARRATIVE: CASE EVENT DATE: 20201013
